FAERS Safety Report 5776287-X (Version None)
Quarter: 2008Q2

REPORT INFORMATION
  Report Type: 
  Country: None (occurrence: None)
  Receive Date: 20080617
  Receipt Date: 20080617
  Transmission Date: 20081010
  Serious: Yes (Other)
  Sender: FDA-Public Use
  Company Number: None

PATIENT
  Sex: Female

DRUGS (1)
  1. SIMVASTATIN [Suspect]
     Indication: DYSLIPIDAEMIA
     Dosage: 20MG DAILY PO
     Route: 048
     Dates: start: 20080317, end: 20080425

REACTIONS (5)
  - MUSCLE TWITCHING [None]
  - MYALGIA [None]
  - PYREXIA [None]
  - RENAL PAIN [None]
  - VISION BLURRED [None]
